FAERS Safety Report 13564109 (Version 2)
Quarter: 2017Q2

REPORT INFORMATION
  Report Type: Spontaneous
  Country: US (occurrence: US)
  Receive Date: 20170519
  Receipt Date: 20170616
  Transmission Date: 20170830
  Serious: Yes (Hospitalization, Other)
  Sender: FDA-Public Use
  Company Number: US-GLAXOSMITHKLINE-US2016GSK199676

PATIENT
  Age: 68 Year
  Sex: Female

DRUGS (13)
  1. CITRULLINE [Concomitant]
     Active Substance: CITRULLINE
  2. FUROSEMIDE. [Concomitant]
     Active Substance: FUROSEMIDE
  3. FAMOTIDINE. [Concomitant]
     Active Substance: FAMOTIDINE
  4. PROPRANOLOL [Concomitant]
     Active Substance: PROPRANOLOL HYDROCHLORIDE
  5. INCRUSE ELLIPTA [Suspect]
     Active Substance: UMECLIDINIUM BROMIDE
     Indication: DYSPNOEA
     Dosage: 1 PUFF(S), 1D
     Route: 055
     Dates: start: 201606
  6. LEVETIRACETAM. [Concomitant]
     Active Substance: LEVETIRACETAM
  7. DIAZEPAM. [Concomitant]
     Active Substance: DIAZEPAM
  8. LEUCOVORIN. [Concomitant]
     Active Substance: LEUCOVORIN
  9. SEREVENT DISKUS [Suspect]
     Active Substance: SALMETEROL XINAFOATE
     Indication: DYSPNOEA
     Dosage: 1 PUFF(S), BID
     Route: 055
     Dates: start: 2011
  10. PRAVASTATIN. [Concomitant]
     Active Substance: PRAVASTATIN
  11. ENTECAVIR. [Concomitant]
     Active Substance: ENTECAVIR
  12. BACLOFEN. [Concomitant]
     Active Substance: BACLOFEN
  13. ACYCLOVIR. [Concomitant]
     Active Substance: ACYCLOVIR

REACTIONS (5)
  - Product quality issue [Unknown]
  - Malignant neoplasm of eye [Recovering/Resolving]
  - Tumour rupture [Unknown]
  - Pain in extremity [Unknown]
  - Drug dose omission [Unknown]

NARRATIVE: CASE EVENT DATE: 201703
